FAERS Safety Report 7821567-7 (Version None)
Quarter: 2011Q4

REPORT INFORMATION
  Report Type: 
  Country: None (occurrence: None)
  Receive Date: 20111018
  Receipt Date: 20110131
  Transmission Date: 20120403
  Serious: No
  Sender: FDA-Public Use
  Company Number: US-ASTRAZENECA-2010SE58875

PATIENT
  Age: 65 Year
  Sex: Male
  Weight: 87.1 kg

DRUGS (3)
  1. PROAIR HFA [Concomitant]
     Indication: DYSPNOEA
  2. SYMBICORT [Suspect]
     Dosage: 160/4.5TWO PUFFS DAILY
     Route: 055
  3. SYMBICORT [Suspect]
     Indication: ASTHMA
     Dosage: 160/4.5 TWO PUFFS TWO TIMES DAILY, TOTAL 320 MCG DAILY
     Route: 055

REACTIONS (3)
  - VISION BLURRED [None]
  - VISUAL IMPAIRMENT [None]
  - INCORRECT DOSE ADMINISTERED [None]
